FAERS Safety Report 25571423 (Version 1)
Quarter: 2025Q3

REPORT INFORMATION
  Report Type: Spontaneous
  Country: RU (occurrence: RU)
  Receive Date: 20250717
  Receipt Date: 20250717
  Transmission Date: 20251021
  Serious: Yes (Death, Life-Threatening, Hospitalization, Other)
  Sender: RANBAXY
  Company Number: RU-SUN PHARMACEUTICAL INDUSTRIES LTD-2025R1-515543

PATIENT
  Age: 17 Year
  Sex: Male

DRUGS (9)
  1. CEFTRIAXONE [Suspect]
     Active Substance: CEFTRIAXONE
     Indication: Antibiotic prophylaxis
     Route: 042
  2. AMOXICILLIN\CLAVULANIC ACID [Suspect]
     Active Substance: AMOXICILLIN\CLAVULANIC ACID
     Indication: Antibiotic prophylaxis
     Dosage: 1.5 GRAM, TID
     Route: 042
  3. NOREPINEPHRINE BITARTRATE [Suspect]
     Active Substance: NOREPINEPHRINE BITARTRATE
     Indication: Positive cardiac inotropic effect
     Route: 065
  4. HEPARIN [Suspect]
     Active Substance: HEPARIN SODIUM
     Indication: Anticoagulant therapy
     Dosage: 5000 INTERNATIONAL UNIT, QID
     Route: 058
  5. LASIX [Suspect]
     Active Substance: FUROSEMIDE
     Indication: Diuretic therapy
     Dosage: 20 MILLIGRAM, QD
     Route: 042
  6. MELDONIUM [Suspect]
     Active Substance: MELDONIUM
     Indication: Hypoxia
     Route: 042
  7. EMOXYPINE SUCCINATE [Suspect]
     Active Substance: EMOXYPINE SUCCINATE
     Indication: Hypoxia
     Route: 042
  8. GLYCYRRHIZIN [Suspect]
     Active Substance: GLYCYRRHIZIN
     Indication: Hepatotoxicity
     Dosage: 2.5 GRAM, QD
     Route: 042
  9. PREDNISOLONE [Suspect]
     Active Substance: PREDNISOLONE
     Indication: Antiinflammatory therapy
     Dosage: 90 MILLIGRAM, QD
     Route: 042

REACTIONS (4)
  - Condition aggravated [Fatal]
  - Treatment failure [Fatal]
  - Bradycardia [Fatal]
  - Cardiac arrest [Fatal]

NARRATIVE: CASE EVENT DATE: 20240422
